FAERS Safety Report 20118061 (Version 1)
Quarter: 2021Q4

REPORT INFORMATION
  Report Type: Spontaneous
  Country: US (occurrence: US)
  Receive Date: 20211126
  Receipt Date: 20211126
  Transmission Date: 20220303
  Serious: No
  Sender: FDA-Public Use
  Company Number: US-MICRO LABS LIMITED-ML2021-02401

PATIENT
  Sex: Female

DRUGS (4)
  1. DORZOLAMIDE [Suspect]
     Active Substance: DORZOLAMIDE
     Dosage: ONE DROP IN RIGHT EYE, TWICE A DAY
  2. ATORVASTATIN [Concomitant]
     Active Substance: ATORVASTATIN
     Indication: Blood cholesterol
  3. AMLODIPINE [Concomitant]
     Active Substance: AMLODIPINE BESYLATE
     Indication: Blood pressure measurement
  4. METOPROLOL [Concomitant]
     Active Substance: METOPROLOL
     Indication: Blood pressure measurement

REACTIONS (3)
  - Burning sensation [Recovered/Resolved]
  - Eye pain [Recovered/Resolved]
  - Suspected product quality issue [Unknown]
